FAERS Safety Report 5358924-7 (Version None)
Quarter: 2007Q2

REPORT INFORMATION
  Report Type: 
  Country: None (occurrence: None)
  Receive Date: 20070615
  Receipt Date: 20070608
  Transmission Date: 20071010
  Serious: Yes (Hospitalization)
  Sender: FDA-Public Use
  Company Number: B0474378A

PATIENT
  Age: 87 Year
  Sex: Male

DRUGS (7)
  1. ARIXTRA [Suspect]
     Indication: DRUG USE FOR UNKNOWN INDICATION
     Dosage: 2.5MG PER DAY
     Route: 058
     Dates: start: 20050615, end: 20070216
  2. AMARYL [Concomitant]
  3. CASODEX [Concomitant]
  4. KESTIN [Concomitant]
  5. XANAX [Concomitant]
  6. PARIET [Concomitant]
  7. ENANTONE [Concomitant]

REACTIONS (3)
  - ABDOMINAL PAIN [None]
  - MUSCLE HAEMORRHAGE [None]
  - OVERDOSE [None]
